FAERS Safety Report 9428551 (Version 1)
Quarter: 2013Q3

REPORT INFORMATION
  Report Type: Report from Study
  Country: US (occurrence: US)
  Receive Date: 20130730
  Receipt Date: 20130730
  Transmission Date: 20140515
  Serious: No
  Sender: FDA-Public Use
  Company Number: US-ABBOTT-12P-163-1023915-00

PATIENT
  Sex: Female
  Weight: 113.5 kg

DRUGS (7)
  1. NIASPAN (COATED) [Suspect]
     Indication: BLOOD CHOLESTEROL INCREASED
     Dates: start: 2009
  2. CRESTOR [Concomitant]
     Indication: PRODUCT USED FOR UNKNOWN INDICATION
  3. TOMAXCIN [Concomitant]
     Indication: PRODUCT USED FOR UNKNOWN INDICATION
  4. THYROID THERAPY [Concomitant]
     Indication: PRODUCT USED FOR UNKNOWN INDICATION
  5. WATER PILLS [Concomitant]
     Indication: PRODUCT USED FOR UNKNOWN INDICATION
  6. TIME RELEASE ARTHRITIS MEDICINE [Concomitant]
     Indication: PRODUCT USED FOR UNKNOWN INDICATION
  7. UNKNOWN ANOTHER CHOLESTEROL MEDICINE [Concomitant]
     Indication: PRODUCT USED FOR UNKNOWN INDICATION

REACTIONS (1)
  - Flushing [Not Recovered/Not Resolved]
